FAERS Safety Report 6011773-9 (Version None)
Quarter: 2008Q4

REPORT INFORMATION
  Report Type: 
  Country: None (occurrence: None)
  Receive Date: 20081218
  Receipt Date: 20080501
  Transmission Date: 20090506
  Serious: No
  Sender: FDA-Public Use
  Company Number: US-ABBOTT-08P-163-0449798-00

PATIENT
  Sex: Female
  Weight: 80.358 kg

DRUGS (2)
  1. MERIDIA [Suspect]
     Indication: WEIGHT CONTROL
     Route: 048
     Dates: start: 20080301, end: 20080301
  2. MERIDIA [Suspect]
     Route: 048
     Dates: start: 20080421, end: 20080430

REACTIONS (3)
  - HEADACHE [None]
  - INCREASED APPETITE [None]
  - VISION BLURRED [None]
